FAERS Safety Report 6730228-7 (Version None)
Quarter: 2010Q2

REPORT INFORMATION
  Report Type: 
  Country: None (occurrence: None)
  Receive Date: 20100513
  Receipt Date: 20100503
  Transmission Date: 20101027
  Serious: Yes (Death, Hospitalization)
  Sender: FDA-Public Use
  Company Number: 98975

PATIENT
  Age: 52 Year
  Sex: Male

DRUGS (1)
  1. CISPLATIN [Suspect]
     Indication: SQUAMOUS CELL CARCINOMA
     Dosage: 117MG
     Dates: start: 20100318

REACTIONS (10)
  - BLOOD CULTURE POSITIVE [None]
  - HYPOTENSION [None]
  - INFECTION [None]
  - MENTAL STATUS CHANGES [None]
  - NEUTROPENIA [None]
  - PNEUMONIA [None]
  - PNEUMONIA ASPIRATION [None]
  - PSEUDOMONAS INFECTION [None]
  - SEPSIS [None]
  - SYNCOPE [None]
